FAERS Safety Report 8816975 (Version 1)
Quarter: 2012Q4

REPORT INFORMATION
  Report Type: Spontaneous
  Country: US (occurrence: None)
  Receive Date: 20121002
  Receipt Date: 20121002
  Transmission Date: 20130627
  Serious: Yes (Life-Threatening, Hospitalization)
  Sender: FDA-Public Use
  Company Number: None

PATIENT
  Age: 54 Year
  Sex: Female
  Weight: 63.05 kg

DRUGS (1)
  1. VANDETANIB [Suspect]
     Indication: MEDULLARY THYROID CANCER
     Route: 048
     Dates: start: 20120806, end: 20120809

REACTIONS (8)
  - Chest discomfort [None]
  - Palpitations [None]
  - Blood glucose decreased [None]
  - Diarrhoea [None]
  - Hypertension [None]
  - Electrocardiogram QT prolonged [None]
  - Electrocardiogram QT prolonged [None]
  - Headache [None]
